FAERS Safety Report 9057582 (Version 7)
Quarter: 2013Q4

REPORT INFORMATION
  Report Type: Spontaneous
  Country: US (occurrence: US)
  Receive Date: 20130204
  Receipt Date: 20131209
  Transmission Date: 20140711
  Serious: Yes (Hospitalization, Other)
  Sender: FDA-Public Use
  Company Number: US-PFIZER INC-2013045096

PATIENT
  Age: 83 Year
  Sex: Female
  Weight: 58.96 kg

DRUGS (7)
  1. TIKOSYN [Suspect]
     Indication: ATRIAL FIBRILLATION
     Dosage: 250 UG, 2X/DAY
     Route: 048
     Dates: start: 2003
  2. TIKOSYN [Suspect]
     Dosage: UNK
  3. TIKOSYN [Suspect]
     Dosage: UNK
  4. TOVIAZ [Suspect]
     Indication: DYSURIA
     Dosage: 4 MG, 1X/DAY
  5. WARFARIN [Concomitant]
     Dosage: UNK
  6. LEVOTHYROXINE [Concomitant]
     Indication: HYPOTHYROIDISM
     Dosage: 75 UG, 1X/DAY
  7. FUROSEMIDE [Concomitant]
     Dosage: 20 MG, 1X/DAY

REACTIONS (13)
  - Wound complication [Unknown]
  - Rheumatoid arthritis [Unknown]
  - Arthropathy [Unknown]
  - Hernia [Unknown]
  - Cyst [Not Recovered/Not Resolved]
  - Bladder neoplasm [Unknown]
  - Foot fracture [Unknown]
  - Laceration [Unknown]
  - Incontinence [Unknown]
  - Contusion [Unknown]
  - Fall [Unknown]
  - Ulcer [Recovering/Resolving]
  - Erythema [Unknown]
